FAERS Safety Report 6995887-2 (Version None)
Quarter: 2010Q3

REPORT INFORMATION
  Report Type: 
  Country: None (occurrence: None)
  Receive Date: 20100918
  Receipt Date: 20081106
  Transmission Date: 20110219
  Serious: Yes (Other)
  Sender: FDA-Public Use
  Company Number: US-WYE-H06767508

PATIENT
  Sex: Female
  Weight: 67.19 kg

DRUGS (7)
  1. EFFEXOR XR [Suspect]
     Indication: DEPRESSION
     Route: 048
     Dates: start: 20080101
  2. TOPROL-XL [Concomitant]
     Indication: BLOOD PRESSURE
     Dosage: UNSPECIFIED DAILY DOSE
  3. LOVASTATIN [Concomitant]
     Dosage: UNSPECIFIED DAILY DOSE
  4. ENBREL [Concomitant]
     Indication: RHEUMATOID ARTHRITIS
     Dosage: UNSPECIFIED
  5. CALCIUM [Concomitant]
     Dosage: UNSPECIFIED DAILY DOSE
  6. NORVASC [Concomitant]
     Indication: BLOOD PRESSURE
     Dosage: UNSPECIFIED DAILY DOSE
  7. LEVOTHYROXINE [Concomitant]
     Indication: HYPOTHYROIDISM
     Dosage: UNSPECIFIED DAILY DOSE

REACTIONS (4)
  - BLOOD PRESSURE INCREASED [None]
  - CONDITION AGGRAVATED [None]
  - DIZZINESS [None]
  - HEADACHE [None]
